FAERS Safety Report 7633381-6 (Version None)
Quarter: 2011Q3

REPORT INFORMATION
  Report Type: 
  Country: None (occurrence: None)
  Receive Date: 20110725
  Receipt Date: 20101117
  Transmission Date: 20111222
  Serious: No
  Sender: FDA-Public Use
  Company Number: US-BRISTOL-MYERS SQUIBB COMPANY-15392129

PATIENT
  Age: 36 Year
  Sex: Male
  Weight: 150 kg

DRUGS (2)
  1. METOPROLOL TARTRATE [Concomitant]
  2. SPRYCEL [Suspect]
     Dates: start: 20101116

REACTIONS (3)
  - SINUS HEADACHE [None]
  - INFLUENZA LIKE ILLNESS [None]
  - PYREXIA [None]
